FAERS Safety Report 24560359 (Version 1)
Quarter: 2024Q4

REPORT INFORMATION
  Report Type: Spontaneous
  Country: CN (occurrence: CN)
  Receive Date: 20241029
  Receipt Date: 20241029
  Transmission Date: 20250115
  Serious: Yes (Life-Threatening)
  Sender: AMGEN
  Company Number: CN-AMGEN-CHNSP2024212747

PATIENT
  Age: 73 Year
  Sex: Male
  Weight: 50 kg

DRUGS (4)
  1. XGEVA [Suspect]
     Active Substance: DENOSUMAB
     Indication: Oesophageal neoplasm
     Dosage: 120 MILLIGRAM
     Route: 040
     Dates: start: 20241004, end: 20241004
  2. SINTILIMAB [Suspect]
     Active Substance: SINTILIMAB
     Indication: Oesophageal neoplasm
     Dosage: 200 MILLIGRAM
     Route: 040
     Dates: start: 20241004, end: 20241004
  3. DOCETAXEL [Suspect]
     Active Substance: DOCETAXEL
     Indication: Oesophageal neoplasm
     Dosage: 100 MILLIGRAM
     Route: 040
     Dates: start: 20241004, end: 20241004
  4. OXALIPLATIN [Suspect]
     Active Substance: OXALIPLATIN
     Indication: Oesophageal neoplasm
     Dosage: 150 MILLIGRAM
     Route: 040
     Dates: start: 20241005, end: 20241005

REACTIONS (1)
  - Myelosuppression [Recovering/Resolving]

NARRATIVE: CASE EVENT DATE: 20241010
